FAERS Safety Report 7787105-2 (Version None)
Quarter: 2011Q3

REPORT INFORMATION
  Report Type: 
  Country: None (occurrence: None)
  Receive Date: 20110929
  Receipt Date: 20110920
  Transmission Date: 20111222
  Serious: Yes (Other)
  Sender: FDA-Public Use
  Company Number: US-ENDO PHARMACEUTICALS INC.-OPER20110219

PATIENT
  Sex: Male

DRUGS (2)
  1. OXYCODONE HCL [Suspect]
     Indication: DRUG ABUSE
     Dosage: N/A
  2. OPANA ER [Suspect]
     Indication: DRUG ABUSE

REACTIONS (2)
  - DRUG DEPENDENCE [None]
  - DRUG ABUSE [None]
